FAERS Safety Report 6863571-1 (Version None)
Quarter: 2010Q3

REPORT INFORMATION
  Report Type: 
  Country: None (occurrence: None)
  Receive Date: 20100721
  Receipt Date: 20080304
  Transmission Date: 20110219
  Serious: No
  Sender: FDA-Public Use
  Company Number: US-PFIZER INC-2008021911

PATIENT
  Sex: Male
  Weight: 100 kg

DRUGS (19)
  1. CHANTIX [Suspect]
     Indication: SMOKING CESSATION THERAPY
     Route: 048
     Dates: start: 20071101
  2. WELLBUTRIN [Concomitant]
  3. PROVIGIL [Concomitant]
  4. BUSPAR [Concomitant]
  5. CYMBALTA [Concomitant]
  6. PRILOSEC [Concomitant]
  7. PROCARDIA [Concomitant]
  8. FOSAMAX [Concomitant]
  9. FENTANYL [Concomitant]
  10. LEVOTHYROXINE SODIUM [Concomitant]
  11. TESTOSTERONE [Concomitant]
  12. GLIPIZIDE [Concomitant]
  13. METFORMIN [Concomitant]
  14. VITAMIN B-12 [Concomitant]
  15. FOLIC ACID [Concomitant]
  16. PANCREATIN [Concomitant]
  17. VITAMIN D [Concomitant]
  18. LOVAZA [Concomitant]
  19. CALCIUM [Concomitant]

REACTIONS (6)
  - ANXIETY [None]
  - DYSKINESIA [None]
  - INSOMNIA [None]
  - RESTLESSNESS [None]
  - TREMOR [None]
  - WEIGHT DECREASED [None]
